FAERS Safety Report 17982419 (Version 1)
Quarter: 2020Q3

REPORT INFORMATION
  Report Type: Spontaneous
  Country: US (occurrence: US)
  Receive Date: 20200702
  Receipt Date: 20200702
  Transmission Date: 20201103
  Serious: No
  Sender: FDA-Public Use
  Company Number: None

PATIENT
  Age: 35 Year
  Sex: Female
  Weight: 49.5 kg

DRUGS (4)
  1. GENERIC ADDERALL (IMMEDIATE RELEASE) [Concomitant]
  2. ADDERALL XR (BRAND) 25MG [Concomitant]
  3. DEXTROAMPHET SACCHARAT, AMPHET ASPARTATE, DEXTROAMPHET SULFATE AND AMPHET SULFAT [Suspect]
     Active Substance: AMPHETAMINE ASPARTATE\AMPHETAMINE SULFATE\DEXTROAMPHETAMINE SACCHARATE\DEXTROAMPHETAMINE SULFATE
     Indication: ATTENTION DEFICIT HYPERACTIVITY DISORDER
     Dosage: ?          QUANTITY:1 TABLET(S);?
     Route: 048
     Dates: start: 20200313, end: 20200513
  4. BUPROPION HCL SR 100MG [Concomitant]
     Active Substance: BUPROPION HYDROCHLORIDE

REACTIONS (15)
  - Drug ineffective [None]
  - Disturbance in attention [None]
  - Product quality issue [None]
  - Somnolence [None]
  - Confusional state [None]
  - Hypersomnia [None]
  - Fatigue [None]
  - Asthenia [None]
  - Product substitution issue [None]
  - Headache [None]
  - Therapy interrupted [None]
  - Drug withdrawal syndrome [None]
  - Anxiety [None]
  - Feeling abnormal [None]
  - Therapeutic product effect incomplete [None]

NARRATIVE: CASE EVENT DATE: 20200313
